FAERS Safety Report 4266312-X (Version None)
Quarter: 2004Q1

REPORT INFORMATION
  Report Type: 
  Country: None (occurrence: None)
  Receive Date: 20040106
  Receipt Date: 20031222
  Transmission Date: 20041129
  Serious: Yes (Death, Life-Threatening, Hospitalization)
  Sender: FDA-Public Use
  Company Number: 30017067-C577098-1

PATIENT
  Age: 21 Year
  Sex: Male
  Weight: 33 kg

DRUGS (20)
  1. EXTRANEAL [Suspect]
     Indication: PERITONEAL DIALYSIS
     Dosage: 7.5 % ICODEXTRIN 2L QD IP
     Route: 033
     Dates: start: 20031023, end: 20031026
  2. DIANEAL [Concomitant]
  3. ROCALTROL [Concomitant]
  4. ALPHAGAN [Concomitant]
  5. MEPHYTON [Concomitant]
  6. FLUOXETINE [Concomitant]
  7. PREDNISONE [Concomitant]
  8. FOLIC ACID [Concomitant]
  9. PROTONIX [Concomitant]
  10. ZANTAC [Concomitant]
  11. CARNETINE [Concomitant]
  12. PHENOBARBITAL TAB [Concomitant]
  13. VALPROIC ACID [Concomitant]
  14. ENBREL [Concomitant]
  15. EPOGEN [Concomitant]
  16. TYLENOL [Concomitant]
  17. IMODIUM [Concomitant]
  18. SIMETHICONE [Concomitant]
  19. CLARITIN [Concomitant]
  20. TUBE FEEDINGS [Concomitant]

REACTIONS (4)
  - ABDOMINAL PAIN [None]
  - PERITONEAL FLUID ANALYSIS ABNORMAL [None]
  - RENAL FAILURE [None]
  - RESPIRATORY FAILURE [None]
